FAERS Safety Report 20016407 (Version 1)
Quarter: 2021Q4

REPORT INFORMATION
  Report Type: Spontaneous
  Country: US (occurrence: None)
  Receive Date: 20211103
  Receipt Date: 20211103
  Transmission Date: 20220303
  Serious: Yes (Hospitalization)
  Sender: FDA-Public Use
  Company Number: None

PATIENT
  Age: 56 Year
  Sex: Female
  Weight: 161.7 kg

DRUGS (1)
  1. CASIRIVIMAB\IMDEVIMAB [Suspect]
     Active Substance: CASIRIVIMAB\IMDEVIMAB
     Indication: COVID-19
     Dosage: FREQUENCY : ONCE;?
     Route: 058
     Dates: start: 20211019, end: 20211019

REACTIONS (2)
  - Acute respiratory failure [None]
  - COVID-19 pneumonia [None]

NARRATIVE: CASE EVENT DATE: 20211021
